FAERS Safety Report 23897807 (Version 2)
Quarter: 2024Q2

REPORT INFORMATION
  Report Type: Report from Study
  Country: US (occurrence: None)
  Receive Date: 20240524
  Receipt Date: 20240607
  Transmission Date: 20240716
  Serious: No
  Sender: FDA-Public Use
  Company Number: 2024A121421

PATIENT
  Sex: Female

DRUGS (1)
  1. LYNPARZA [Suspect]
     Active Substance: OLAPARIB
     Route: 048

REACTIONS (5)
  - Swollen tongue [Unknown]
  - Dysphagia [Unknown]
  - Nausea [Unknown]
  - Hypersensitivity [Unknown]
  - Fatigue [Unknown]
